FAERS Safety Report 7234074-X (Version None)
Quarter: 2011Q1

REPORT INFORMATION
  Report Type: 
  Country: None (occurrence: None)
  Receive Date: 20110113
  Receipt Date: 20110113
  Transmission Date: 20110831
  Serious: Yes (Hospitalization)
  Sender: FDA-Public Use
  Company Number: None

PATIENT
  Sex: Female
  Weight: 79 kg

DRUGS (2)
  1. VINORELBINE TARTRATE [Suspect]
     Dosage: 114 MG
     Dates: end: 20101228
  2. CISPLATIN [Suspect]
     Dosage: 142 MG
     Dates: end: 20101221

REACTIONS (1)
  - FEBRILE NEUTROPENIA [None]
